FAERS Safety Report 8969024 (Version 1)
Quarter: 2012Q4

REPORT INFORMATION
  Report Type: 
  Country: US (occurrence: US)
  Receive Date: 20121218
  Receipt Date: 20121218
  Transmission Date: 20130627
  Serious: No
  Sender: FDA-Public Use
  Company Number: US-BRISTOL-MYERS SQUIBB COMPANY-16349037

PATIENT
  Age: 65 Year
  Sex: Female
  Weight: 75 kg

DRUGS (1)
  1. ABILIFY [Suspect]
     Indication: DEPRESSION

REACTIONS (8)
  - Fall [Unknown]
  - Movement disorder [Unknown]
  - Dizziness [Unknown]
  - Gait disturbance [Unknown]
  - Feeling jittery [Unknown]
  - Visual impairment [Unknown]
  - Blood glucose increased [Unknown]
  - Drug dose omission [Unknown]
